FAERS Safety Report 6902083-3 (Version None)
Quarter: 2010Q3

REPORT INFORMATION
  Report Type: 
  Country: None (occurrence: None)
  Receive Date: 20100803
  Receipt Date: 20080417
  Transmission Date: 20110219
  Serious: No
  Sender: FDA-Public Use
  Company Number: US-PFIZER INC-2008034925

PATIENT
  Age: 68 Year
  Sex: Male
  Weight: 100.9 kg

DRUGS (1)
  1. LYRICA [Suspect]
     Indication: PAIN IN EXTREMITY

REACTIONS (1)
  - DRUG SCREEN POSITIVE [None]
